FAERS Safety Report 15083557 (Version 2)
Quarter: 2018Q3

REPORT INFORMATION
  Report Type: Spontaneous
  Country: US (occurrence: US)
  Receive Date: 20180628
  Receipt Date: 20180706
  Transmission Date: 20181010
  Serious: No
  Sender: FDA-Public Use
  Company Number: US-CELGENEUS-USA-20180607339

PATIENT
  Age: 62 Year
  Sex: Male

DRUGS (7)
  1. OTEZLA [Suspect]
     Active Substance: APREMILAST
     Dosage: 60 MILLIGRAM
     Route: 048
     Dates: start: 20180610, end: 20180618
  2. OTEZLA [Suspect]
     Active Substance: APREMILAST
     Indication: PSORIASIS
     Dosage: 10 MILLIGRAM
     Route: 048
     Dates: start: 20180605, end: 20180605
  3. OTEZLA [Suspect]
     Active Substance: APREMILAST
     Dosage: 10 MG AM AND 20 MG PM
     Route: 048
     Dates: start: 20180607, end: 20180607
  4. OTEZLA [Suspect]
     Active Substance: APREMILAST
     Dosage: 20 MG AM AND 30 MG PM
     Route: 048
     Dates: start: 20180609, end: 20180609
  5. OTEZLA [Suspect]
     Active Substance: APREMILAST
     Dosage: 20 MG AM AND 20 MG PM
     Route: 048
     Dates: start: 20180608, end: 20180608
  6. OTEZLA [Suspect]
     Active Substance: APREMILAST
     Dosage: 20 MILLIGRAM
     Route: 048
     Dates: start: 20180606, end: 20180606
  7. ENBREL [Concomitant]
     Active Substance: ETANERCEPT
     Indication: PSORIASIS
     Dosage: 0.98 MILLILITER
     Route: 065
     Dates: start: 2002, end: 20180604

REACTIONS (2)
  - Mood swings [Recovered/Resolved]
  - Diarrhoea [Recovered/Resolved]

NARRATIVE: CASE EVENT DATE: 20180606
